FAERS Safety Report 8394191-8 (Version None)
Quarter: 2012Q2

REPORT INFORMATION
  Report Type: 
  Country: None (occurrence: None)
  Receive Date: 20120530
  Receipt Date: 20120521
  Transmission Date: 20120825
  Serious: Yes (Hospitalization)
  Sender: FDA-Public Use
  Company Number: US-US-EMD SERONO, INC.-7127913

PATIENT
  Sex: Female

DRUGS (8)
  1. REBIF [Suspect]
     Indication: MULTIPLE SCLEROSIS
     Route: 058
     Dates: start: 20120416, end: 20120511
  2. REBIF [Suspect]
     Route: 058
     Dates: start: 20120420
  3. PROTONIX [Concomitant]
     Indication: GASTROOESOPHAGEAL REFLUX DISEASE
  4. BACLOFEN [Concomitant]
     Indication: THROAT TIGHTNESS
  5. PROPRANOLOL [Concomitant]
     Indication: HYPERTENSION
  6. MOTRIN [Concomitant]
     Indication: PREMEDICATION
  7. LORAZEPAM [Concomitant]
     Indication: ANXIETY
  8. TOPIRAMATE [Concomitant]
     Indication: MIGRAINE

REACTIONS (7)
  - MIGRAINE [None]
  - PRESYNCOPE [None]
  - DYSKINESIA OESOPHAGEAL [None]
  - IMPAIRED GASTRIC EMPTYING [None]
  - ABNORMAL DREAMS [None]
  - ASTHENIA [None]
  - DIZZINESS [None]
